FAERS Safety Report 17298854 (Version 1)
Quarter: 2020Q1

REPORT INFORMATION
  Report Type: Report from Study
  Country: None (occurrence: US)
  Receive Date: 20200121
  Receipt Date: 20200121
  Transmission Date: 20200409
  Serious: Yes (Hospitalization)
  Sender: FDA-Public Use
  Company Number: US-ABBVIE-20P-163-3239795-00

PATIENT
  Age: 53 Year
  Sex: Male
  Weight: 70.9 kg

DRUGS (2)
  1. IBRUTINIB [Suspect]
     Active Substance: IBRUTINIB
     Indication: COLORECTAL CANCER
     Dosage: 2 CYCLES
     Route: 048
     Dates: start: 20190805, end: 20190916
  2. PEMBROLIZUMAB. [Concomitant]
     Active Substance: PEMBROLIZUMAB
     Indication: COLORECTAL CANCER
     Dosage: 2 CYCLES
     Route: 042
     Dates: start: 20190805, end: 20190826

REACTIONS (1)
  - Pneumonia [Recovered/Resolved]

NARRATIVE: CASE EVENT DATE: 20190921
